FAERS Safety Report 8919279 (Version 2)
Quarter: 2013Q1

REPORT INFORMATION
  Report Type: Spontaneous
  Country: FR (occurrence: FR)
  Receive Date: 20121121
  Receipt Date: 20130107
  Transmission Date: 20140127
  Serious: Yes (Hospitalization)
  Sender: FDA-Public Use
  Company Number: FR-PFIZER INC-2012284812

PATIENT
  Age: 68 Year
  Sex: Male

DRUGS (11)
  1. TAHOR [Suspect]
     Dosage: 10 MG, 1X/DAY
     Route: 048
  2. ADRIBLASTINE [Suspect]
     Indication: SMALL CELL LUNG CANCER METASTATIC
     Dosage: 71 MG, 1X/DAY
     Route: 042
     Dates: start: 20120917, end: 20120917
  3. ENDOXAN [Suspect]
     Indication: SMALL CELL LUNG CANCER METASTATIC
     Dosage: 1600 MG, 1X/DAY
     Route: 042
     Dates: start: 20120917, end: 20120917
  4. CARBOPLATIN [Suspect]
     Indication: SMALL CELL LUNG CANCER METASTATIC
     Dosage: 150 MG, CYCLIC
     Route: 042
     Dates: start: 20120620, end: 20120820
  5. ETOPOPHOS [Suspect]
     Indication: SMALL CELL LUNG CANCER METASTATIC
     Dosage: 160 MG, CYCLIC
     Route: 042
     Dates: start: 20120620, end: 20120917
  6. GLUCOPHAGE [Suspect]
     Dosage: 1000 MG, 3X/DAY
     Route: 048
  7. COVERSYL [Suspect]
     Dosage: 2.5 MG, 1X/DAY
     Route: 048
  8. TEMERIT [Suspect]
     Dosage: 5 MG, 1X/DAY
     Route: 048
  9. LERCAN [Suspect]
     Dosage: 5 MG, 1X/DAY
     Route: 048
  10. PLAVIX [Suspect]
     Dosage: 75 MG, 1X/DAY
     Route: 048
  11. NOVONORM [Suspect]
     Dosage: 1 MG, 2X/DAY
     Route: 048

REACTIONS (2)
  - Sinus arrhythmia [Recovered/Resolved with Sequelae]
  - Syncope [Recovered/Resolved]
